FAERS Safety Report 10242876 (Version 1)
Quarter: 2014Q2

REPORT INFORMATION
  Report Type: Spontaneous
  Country: IT (occurrence: IT)
  Receive Date: 20140618
  Receipt Date: 20140618
  Transmission Date: 20141212
  Serious: Yes (Hospitalization)
  Sender: FDA-Public Use
  Company Number: IT-RANBAXY-2014RR-82333

PATIENT
  Age: 27 Year
  Sex: Male

DRUGS (3)
  1. PARACETAMOL [Suspect]
     Indication: DRUG ABUSE
     Dosage: 30 DF COMPLETE
     Route: 048
     Dates: start: 20140122, end: 20140122
  2. MUSCORIL [Suspect]
     Indication: DRUG ABUSE
     Dosage: 20 DF COMPLETE
     Route: 048
     Dates: start: 20140122, end: 20140122
  3. NEO FURADANTIN [Suspect]
     Indication: DRUG ABUSE
     Dosage: 20 DF COMPLETE
     Route: 048
     Dates: start: 20140122, end: 20140122

REACTIONS (3)
  - Agitation [Unknown]
  - Vomiting [Unknown]
  - Toxicity to various agents [Unknown]
